FAERS Safety Report 4341722-0 (Version None)
Quarter: 2004Q2

REPORT INFORMATION
  Report Type: 
  Country: None (occurrence: None)
  Receive Date: 20040420
  Receipt Date: 20040209
  Transmission Date: 20050107
  Serious: Yes (Other)
  Sender: FDA-Public Use
  Company Number: US-ROCHE-358583

PATIENT
  Sex: Female
  Weight: 82.6 kg

DRUGS (2)
  1. XENICAL [Suspect]
     Indication: DRUG USE FOR UNKNOWN INDICATION
     Route: 048
  2. XENICAL [Suspect]
     Dosage: DAILY DOSE: 2 TABLETS PER DAY.
     Route: 048
     Dates: start: 20040216

REACTIONS (4)
  - BRONCHITIS [None]
  - COLLAPSE OF LUNG [None]
  - NASOPHARYNGITIS [None]
  - PNEUMONIA [None]
